FAERS Safety Report 7793769 (Version 2)
Quarter: 2013Q4

REPORT INFORMATION
  Report Type: Spontaneous
  Country: PT (occurrence: PT)
  Receive Date: 20110201
  Receipt Date: 20131113
  Transmission Date: 20140711
  Serious: Yes (Other)
  Sender: FDA-Public Use
  Company Number: PT-JNJFOC-20110106007

PATIENT
  Age: 37 Year
  Sex: Male

DRUGS (2)
  1. REMICADE [Suspect]
     Indication: CROHN^S DISEASE
     Route: 042
     Dates: start: 2006
  2. AZATHIOPRINE [Concomitant]
     Dates: start: 2002

REACTIONS (3)
  - Hodgkin^s disease [Unknown]
  - Epstein-Barr virus test positive [Unknown]
  - Crohn^s disease [Unknown]
